FAERS Safety Report 17573614 (Version 1)
Quarter: 2020Q1

REPORT INFORMATION
  Report Type: Spontaneous
  Country: DE (occurrence: DE)
  Receive Date: 20200323
  Receipt Date: 20200323
  Transmission Date: 20200409
  Serious: Yes (Other)
  Sender: FDA-Public Use
  Company Number: DE-PFIZER INC-2020115768

PATIENT

DRUGS (1)
  1. CYTOTEC [Suspect]
     Active Substance: MISOPROSTOL
     Indication: LABOUR INDUCTION
     Dosage: 1 DF, SINGLE
     Route: 064
     Dates: start: 20170423, end: 20170423

REACTIONS (3)
  - Foetal heart rate decreased [Recovering/Resolving]
  - Foetal exposure during pregnancy [Recovered/Resolved with Sequelae]
  - Neonatal hypoxia [Recovered/Resolved with Sequelae]

NARRATIVE: CASE EVENT DATE: 20170423
